FAERS Safety Report 6505685-1 (Version None)
Quarter: 2009Q4

REPORT INFORMATION
  Report Type: 
  Country: None (occurrence: None)
  Receive Date: 20091218
  Receipt Date: 20091211
  Transmission Date: 20100525
  Serious: Yes (Hospitalization)
  Sender: FDA-Public Use
  Company Number: B0579895A

PATIENT
  Sex: Female
  Weight: 36 kg

DRUGS (21)
  1. PAXIL [Suspect]
     Indication: DEPRESSION
     Dosage: 20MG PER DAY
     Route: 048
     Dates: end: 20090714
  2. VELCADE [Suspect]
     Indication: MULTIPLE MYELOMA
     Dosage: 1.7MG THREE TIMES PER DAY
     Route: 042
     Dates: start: 20090602, end: 20090609
  3. ALKERAN [Concomitant]
     Dates: start: 20050901, end: 20070601
  4. ALKERAN [Concomitant]
     Dates: start: 20080306, end: 20090427
  5. PREDONINE [Concomitant]
     Dates: start: 20050901, end: 20070601
  6. PREDONINE [Concomitant]
     Dates: start: 20080306, end: 20090427
  7. GLAKAY [Concomitant]
     Indication: MULTIPLE MYELOMA
     Route: 048
     Dates: start: 20080303
  8. DOGMATYL [Concomitant]
     Indication: DEPRESSION
     Route: 048
     Dates: end: 20090614
  9. ONEALFA [Concomitant]
     Indication: MULTIPLE MYELOMA
     Route: 048
     Dates: start: 20080303
  10. DEPAS [Concomitant]
     Indication: NEUROSIS
     Route: 048
  11. ITRIZOLE [Concomitant]
     Indication: MULTIPLE MYELOMA
     Route: 048
     Dates: start: 20080508
  12. GASTER [Concomitant]
     Indication: DUODENAL ULCER
     Route: 048
     Dates: end: 20090614
  13. BAKTAR [Concomitant]
     Indication: MULTIPLE MYELOMA
     Route: 048
     Dates: start: 20080630
  14. NORVASC [Concomitant]
     Indication: HYPERTENSION
     Route: 048
     Dates: start: 20090529, end: 20090604
  15. ASPARA K [Concomitant]
     Indication: MULTIPLE MYELOMA
     Route: 048
     Dates: start: 20090601, end: 20090614
  16. ASPARA CA [Concomitant]
     Indication: MULTIPLE MYELOMA
     Route: 048
     Dates: start: 20090601, end: 20090614
  17. MARZULENE [Concomitant]
     Indication: MULTIPLE MYELOMA
     Route: 048
     Dates: start: 20090602
  18. JUVELA N [Concomitant]
     Indication: MULTIPLE MYELOMA
     Dosage: 300MG PER DAY
     Route: 048
  19. VITAMEDIN [Concomitant]
     Indication: MULTIPLE MYELOMA
     Route: 048
     Dates: start: 20090602
  20. MAGMITT [Concomitant]
     Indication: CONSTIPATION
     Route: 048
     Dates: start: 20090603, end: 20090614
  21. DECADRON [Concomitant]
     Indication: MULTIPLE MYELOMA
     Route: 042
     Dates: start: 20090602, end: 20090610

REACTIONS (14)
  - ABNORMAL BEHAVIOUR [None]
  - BLOOD PRODUCT TRANSFUSION DEPENDENT [None]
  - CONSTIPATION [None]
  - DEPRESSED LEVEL OF CONSCIOUSNESS [None]
  - DYSARTHRIA [None]
  - DYSPHAGIA [None]
  - EATING DISORDER [None]
  - ELECTROLYTE IMBALANCE [None]
  - GRIP STRENGTH DECREASED [None]
  - HERPES ZOSTER [None]
  - HYPONATRAEMIA [None]
  - INAPPROPRIATE ANTIDIURETIC HORMONE SECRETION [None]
  - POVERTY OF SPEECH [None]
  - SPEECH DISORDER [None]
